FAERS Safety Report 8985078 (Version 1)
Quarter: 2012Q4

REPORT INFORMATION
  Report Type: 
  Country: FR (occurrence: FR)
  Receive Date: 20121226
  Receipt Date: 20121226
  Transmission Date: 20130627
  Serious: Yes (Hospitalization)
  Sender: FDA-Public Use
  Company Number: PHHY2012FR118665

PATIENT
  Age: 51 Year
  Sex: Male

DRUGS (9)
  1. TRILEPTAL [Suspect]
     Dosage: 750 mg, BID
     Dates: start: 201208, end: 201210
  2. TRILEPTAL [Suspect]
     Dosage: 900 mg, BID
     Dates: start: 201210
  3. KEPPRA [Concomitant]
     Dosage: UNK UKN, UNK
  4. KIVEXA [Concomitant]
     Dosage: UNK UKN, UNK
  5. NORVIR [Concomitant]
     Dosage: UNK UKN, UNK
  6. DETENSIEL [Concomitant]
     Dosage: UNK UKN, UNK
  7. KARDEGIC [Concomitant]
     Dosage: UNK UKN, UNK
  8. XANAX [Concomitant]
     Dosage: UNK
  9. GUTRON [Concomitant]
     Dosage: UNK UKN, UNK

REACTIONS (3)
  - Lumbar vertebral fracture [Unknown]
  - Fall [Unknown]
  - Hyponatraemia [Not Recovered/Not Resolved]
